FAERS Safety Report 4967344-6 (Version None)
Quarter: 2006Q2

REPORT INFORMATION
  Report Type: 
  Country: None (occurrence: None)
  Receive Date: 20060410
  Receipt Date: 20051207
  Transmission Date: 20061013
  Serious: Yes (Other)
  Sender: FDA-Public Use
  Company Number: US-MERCK-0512USA01460

PATIENT
  Age: 57 Year
  Sex: Female
  Weight: 95 kg

DRUGS (25)
  1. VIOXX [Suspect]
     Indication: OSTEOARTHRITIS
     Route: 048
     Dates: start: 20000801, end: 20040601
  2. CLARITIN [Concomitant]
     Route: 065
  3. LIPITOR [Concomitant]
     Route: 065
  4. POTASSIUM CHLORIDE [Concomitant]
     Route: 065
  5. ALPRAZOLAM [Concomitant]
     Route: 065
  6. ESTRADIOL [Concomitant]
     Route: 065
  7. EFFEXOR [Concomitant]
     Route: 065
  8. SALSALATE [Concomitant]
     Route: 065
  9. HALOTUSSIN AC [Concomitant]
     Route: 065
  10. RANITIDINE [Concomitant]
     Route: 065
  11. CLEOCIN [Concomitant]
     Route: 065
  12. HYDROCODONE HYDROCHLORIDE [Concomitant]
     Route: 065
  13. ASPIRIN [Concomitant]
     Route: 065
  14. MEDROXYPROGESTERONE ACETATE [Concomitant]
     Route: 065
  15. CODEINE [Concomitant]
     Route: 065
  16. HYDROCHLOROTHIAZIDE [Concomitant]
     Route: 065
  17. NASONEX [Concomitant]
     Route: 065
  18. XANAX [Concomitant]
     Route: 065
  19. FLOVENT [Concomitant]
     Route: 065
  20. ZOCOR [Concomitant]
     Route: 065
  21. PREMPRO [Concomitant]
     Route: 065
  22. LISINOPRIL [Concomitant]
     Route: 065
  23. ATENOLOL [Concomitant]
     Route: 065
  24. AVAPRO [Concomitant]
     Route: 065
  25. TYLENOL (CAPLET) [Concomitant]
     Route: 065

REACTIONS (2)
  - CEREBROVASCULAR ACCIDENT [None]
  - TRANSIENT ISCHAEMIC ATTACK [None]
